FAERS Safety Report 24051215 (Version 4)
Quarter: 2024Q3

REPORT INFORMATION
  Report Type: Spontaneous
  Country: US (occurrence: US)
  Receive Date: 20240704
  Receipt Date: 20240814
  Transmission Date: 20241017
  Serious: No
  Sender: SANOFI AVENTIS
  Company Number: US-SANOFI-02115162

PATIENT
  Age: 63 Year
  Sex: Female
  Weight: 101 kg

DRUGS (1)
  1. LANTUS [Suspect]
     Active Substance: INSULIN GLARGINE
     Indication: Type 2 diabetes mellitus
     Dosage: 70 IU, HS (EVERY NIGHT AT 9:00PM )
     Dates: start: 2019, end: 2024

REACTIONS (5)
  - Skin burning sensation [Unknown]
  - Erythema [Recovered/Resolved]
  - Throat irritation [Unknown]
  - Urticaria [Recovered/Resolved]
  - Pruritus [Recovered/Resolved]

NARRATIVE: CASE EVENT DATE: 20240615
